FAERS Safety Report 18469798 (Version 3)
Quarter: 2023Q4

REPORT INFORMATION
  Report Type: Spontaneous
  Country: US (occurrence: US)
  Receive Date: 20201105
  Receipt Date: 20231123
  Transmission Date: 20240109
  Serious: Yes (Hospitalization)
  Sender: FDA-Public Use
  Company Number: US-TEVA-2020-US-1843974

PATIENT
  Age: 77 Year
  Sex: Female

DRUGS (4)
  1. DULOXETINE [Suspect]
     Active Substance: DULOXETINE
     Indication: Pain
     Dosage: 60 MILLIGRAM DAILY; SHE HAD BEEN RECEIVING DULOXETINE FOR PAST 1 YEAR AND SHE ABRUPTLY STOPPED ONE M
     Route: 065
  2. DULOXETINE [Suspect]
     Active Substance: DULOXETINE
     Indication: Arthritis
  3. METHYLPHENIDATE [Concomitant]
     Active Substance: METHYLPHENIDATE
     Indication: Narcolepsy
     Dosage: 50 MILLIGRAM DAILY; EXTENDED RELEASE FORMULATION
     Route: 065
  4. METHYLPHENIDATE [Concomitant]
     Active Substance: METHYLPHENIDATE
     Indication: Cataplexy

REACTIONS (3)
  - Cataplexy [Recovered/Resolved]
  - Dry mouth [Unknown]
  - Drug withdrawal syndrome [Recovered/Resolved]
